FAERS Safety Report 7998146-4 (Version None)
Quarter: 2011Q4

REPORT INFORMATION
  Report Type: 
  Country: None (occurrence: None)
  Receive Date: 20111221
  Receipt Date: 20110305
  Transmission Date: 20120403
  Serious: No
  Sender: FDA-Public Use
  Company Number: US-GLAXOSMITHKLINE-A0916987A

PATIENT
  Sex: Female

DRUGS (4)
  1. METOPROLOL TARTRATE [Concomitant]
  2. CRESTOR [Concomitant]
  3. LOVAZA [Suspect]
     Indication: BLOOD TRIGLYCERIDES INCREASED
     Route: 048
  4. HYZAAR [Concomitant]

REACTIONS (5)
  - URINE ODOUR ABNORMAL [None]
  - ABDOMINAL DISTENSION [None]
  - FEELING ABNORMAL [None]
  - SKIN ODOUR ABNORMAL [None]
  - WEIGHT INCREASED [None]
